FAERS Safety Report 4331813-2 (Version None)
Quarter: 2004Q2

REPORT INFORMATION
  Report Type: 
  Country: None (occurrence: None)
  Receive Date: 20040405
  Receipt Date: 20030929
  Transmission Date: 20050107
  Serious: No
  Sender: FDA-Public Use
  Company Number: US-GLAXOSMITHKLINE-A0427743A

PATIENT
  Sex: Female

DRUGS (1)
  1. FLOVENT [Suspect]
     Indication: ILL-DEFINED DISORDER
     Route: 055
     Dates: start: 20021101

REACTIONS (2)
  - RASH [None]
  - WEIGHT INCREASED [None]
